FAERS Safety Report 24151565 (Version 4)
Quarter: 2024Q3

REPORT INFORMATION
  Report Type: Report from Study
  Country: US (occurrence: US)
  Receive Date: 20240730
  Receipt Date: 20240906
  Transmission Date: 20241017
  Serious: Yes (Hospitalization, Other)
  Sender: GILEAD
  Company Number: US-GILEAD-2024-0681047

PATIENT
  Age: 56 Year
  Sex: Female

DRUGS (2)
  1. AMBRISENTAN [Suspect]
     Active Substance: AMBRISENTAN
     Indication: Pulmonary hypertension
     Dosage: 10 MG, QD
     Route: 065
     Dates: start: 20190925
  2. REVATIO [Concomitant]
     Active Substance: SILDENAFIL CITRATE

REACTIONS (9)
  - Pulmonary oedema [Unknown]
  - Dyspnoea [Recovering/Resolving]
  - Troponin increased [Unknown]
  - Restlessness [Not Recovered/Not Resolved]
  - Anxiety [Unknown]
  - COVID-19 [Unknown]
  - Lung opacity [Unknown]
  - Arthropod bite [Unknown]
  - Fatigue [Unknown]

NARRATIVE: CASE EVENT DATE: 20240713
